FAERS Safety Report 5028962-2 (Version None)
Quarter: 2006Q2

REPORT INFORMATION
  Report Type: 
  Country: None (occurrence: None)
  Receive Date: 20060619
  Receipt Date: 20060421
  Transmission Date: 20061013
  Serious: Yes (Hospitalization)
  Sender: FDA-Public Use
  Company Number: ES-BRISTOL-MYERS SQUIBB COMPANY-13414875

PATIENT
  Age: 28 Year
  Sex: Female

DRUGS (4)
  1. TRAZODONE HCL [Suspect]
     Indication: DEPRESSION
     Route: 048
     Dates: start: 20041001, end: 20051111
  2. PEPCID [Suspect]
     Route: 054
     Dates: start: 20051001, end: 20051006
  3. MELIANE [Suspect]
     Indication: CONTRACEPTION
     Dosage: 1 DOSAGE FORM = 1 CAPSULE
     Route: 048
     Dates: start: 20050910, end: 20050911
  4. TRANKIMAZIN [Suspect]
     Indication: NEUROSIS
     Route: 048
     Dates: start: 20041001, end: 20050911

REACTIONS (1)
  - HEPATITIS [None]
